FAERS Safety Report 10937258 (Version 1)
Quarter: 2015Q1

REPORT INFORMATION
  Report Type: Spontaneous
  Country: US (occurrence: None)
  Receive Date: 20150212
  Receipt Date: 20150212
  Transmission Date: 20150721
  Serious: No
  Sender: FDA-Public Use
  Company Number: TPA2011A02412

PATIENT
  Age: 56 Year
  Sex: Female

DRUGS (2)
  1. COLCREYS (COLCHICINE) [Concomitant]
  2. ULORIC [Suspect]
     Active Substance: FEBUXOSTAT
     Indication: GOUT
     Route: 048
     Dates: start: 20110303

REACTIONS (1)
  - Faeces hard [None]

NARRATIVE: CASE EVENT DATE: 201003
